FAERS Safety Report 25412356 (Version 1)
Quarter: 2025Q2

REPORT INFORMATION
  Report Type: Spontaneous
  Country: CN (occurrence: CN)
  Receive Date: 20250609
  Receipt Date: 20250609
  Transmission Date: 20250717
  Serious: Yes (Hospitalization, Other)
  Sender: SANOFI AVENTIS
  Company Number: CN-SA-2025SA158508

PATIENT
  Age: 67 Year
  Sex: Male
  Weight: 55.1 kg

DRUGS (1)
  1. DUPILUMAB [Suspect]
     Active Substance: DUPILUMAB
     Indication: Chronic obstructive pulmonary disease
     Route: 058
     Dates: start: 20250513, end: 20250513

REACTIONS (7)
  - Drug eruption [Recovering/Resolving]
  - Papule [Unknown]
  - Erythema [Unknown]
  - Rash [Recovered/Resolved]
  - Pruritus [Recovering/Resolving]
  - Dyspnoea [Unknown]
  - Product use in unapproved indication [Unknown]

NARRATIVE: CASE EVENT DATE: 20250513
